FAERS Safety Report 5925979-8 (Version None)
Quarter: 2008Q3

REPORT INFORMATION
  Report Type: 
  Country: None (occurrence: None)
  Receive Date: 20080923
  Receipt Date: 20070731
  Transmission Date: 20090109
  Serious: Yes (Other)
  Sender: FDA-Public Use
  Company Number: WAES 0708USA00226

PATIENT
  Age: 80 Year
  Sex: Female
  Weight: 84.369 kg

DRUGS (7)
  1. VYTORIN [Suspect]
     Indication: LIPIDS INCREASED
     Dosage: 10-80 MG/DAILY/PO
     Route: 048
     Dates: end: 20070719
  2. ARMOUR THYROID TABLETS [Concomitant]
  3. VITEYES AREDS ADVANCED [Concomitant]
  4. ASPIRIN [Concomitant]
  5. ATENOLOL [Concomitant]
  6. HYDROCHLOROTHIAZIDE [Concomitant]
  7. POTASSIUM CHLORIDE [Concomitant]

REACTIONS (1)
  - RHABDOMYOLYSIS [None]
